FAERS Safety Report 23226494 (Version 1)
Quarter: 2023Q4

REPORT INFORMATION
  Report Type: Spontaneous
  Country: GB (occurrence: GB)
  Receive Date: 20231124
  Receipt Date: 20231124
  Transmission Date: 20240110
  Serious: Yes (Hospitalization, Other)
  Sender: FDA-Public Use
  Company Number: GB-TEVA-2023-GB-2949450

PATIENT
  Sex: Female

DRUGS (2)
  1. LAMOTRIGINE [Suspect]
     Active Substance: LAMOTRIGINE
     Indication: Product used for unknown indication
     Dosage: 50 MILLIGRAM DAILY; GRADUALLY INCREASED TO 100MG TWICE DAILY, 125MG TWICE DAILY, 150MG TWICE DAILY,
     Route: 065
     Dates: start: 20190525, end: 20200120
  2. EPILIM [Suspect]
     Active Substance: VALPROATE SODIUM
     Indication: Product used for unknown indication
     Dosage: 1200 MILLIGRAM DAILY; THERAPY END DATE: NOT ASKED
     Route: 065
     Dates: start: 2000

REACTIONS (12)
  - Cognitive disorder [Unknown]
  - Aphasia [Unknown]
  - Asthenia [Unknown]
  - Seizure [Unknown]
  - Loss of consciousness [Unknown]
  - Cerebral atrophy [Unknown]
  - Subgaleal haematoma [Unknown]
  - Tremor [Unknown]
  - Dyspnoea [Unknown]
  - Anxiety [Unknown]
  - Cerebral hypoperfusion [Unknown]
  - Dementia Alzheimer^s type [Unknown]
